FAERS Safety Report 21364073 (Version 1)
Quarter: 2022Q3

REPORT INFORMATION
  Report Type: Spontaneous
  Country: US (occurrence: None)
  Receive Date: 20220921
  Receipt Date: 20220921
  Transmission Date: 20221027
  Serious: No
  Sender: FDA-Public Use
  Company Number: None

PATIENT
  Age: 50 Year
  Sex: Female
  Weight: 57.15 kg

DRUGS (5)
  1. NURTEC ODT [Suspect]
     Active Substance: RIMEGEPANT SULFATE
     Indication: Migraine prophylaxis
     Dosage: OTHER QUANTITY : 8 TABLET(S);?OTHER FREQUENCY : EVERY OTHER DAY;?
     Route: 048
     Dates: start: 20220917, end: 20220921
  2. ESTRADIOL [Concomitant]
     Active Substance: ESTRADIOL
  3. PRILOSEC [Concomitant]
     Active Substance: OMEPRAZOLE MAGNESIUM
  4. Tums prn [Concomitant]
  5. Pepcid 20 mg prn [Concomitant]

REACTIONS (7)
  - Abdominal pain upper [None]
  - Frequent bowel movements [None]
  - Diarrhoea [None]
  - Mucous stools [None]
  - Flatulence [None]
  - Depressed level of consciousness [None]
  - Dissociation [None]

NARRATIVE: CASE EVENT DATE: 20220919
